FAERS Safety Report 21184503 (Version 1)
Quarter: 2022Q3

REPORT INFORMATION
  Report Type: Spontaneous
  Country: CA (occurrence: CA)
  Receive Date: 20220808
  Receipt Date: 20220808
  Transmission Date: 20221027
  Serious: Yes (Hospitalization, Other)
  Sender: FDA-Public Use
  Company Number: None

PATIENT
  Age: 66 Year
  Sex: Male

DRUGS (35)
  1. METHOTREXATE [Interacting]
     Active Substance: METHOTREXATE
     Indication: Product used for unknown indication
     Dosage: 1 EVERY 2 WEEKS
     Route: 048
  2. ACLASTA [Interacting]
     Active Substance: ZOLEDRONIC ACID
     Indication: Osteoporosis
     Dosage: SOLUTION INTRAVENOUS
     Route: 042
  3. AMIODARONE [Interacting]
     Active Substance: AMIODARONE
     Indication: Atrial fibrillation
     Route: 065
  4. ASPIRIN [Interacting]
     Active Substance: ASPIRIN
     Indication: Pericarditis
     Route: 065
  5. COLCHICINE [Interacting]
     Active Substance: COLCHICINE
     Indication: Pericarditis
     Route: 065
  6. FOLIC ACID [Interacting]
     Active Substance: FOLIC ACID
     Indication: Product used for unknown indication
     Dosage: 1 EVERY 1 WEEKS
     Route: 065
  7. PREDNISONE [Interacting]
     Active Substance: PREDNISONE
     Indication: Rheumatoid arthritis
     Route: 048
  8. ALENDRONATE SODIUM [Concomitant]
     Active Substance: ALENDRONATE SODIUM
     Indication: Bone disorder
     Route: 065
  9. CALCIUM CARBONATE [Concomitant]
     Active Substance: CALCIUM CARBONATE
     Indication: Product used for unknown indication
     Route: 065
  10. AVODART [Concomitant]
     Active Substance: DUTASTERIDE
     Indication: Product used for unknown indication
     Dosage: 1 EVERY 1 DAYS
     Route: 048
  11. CALCIUM [Concomitant]
     Active Substance: CALCIUM
     Indication: Bone disorder
     Route: 065
  12. COZAAR [Concomitant]
     Active Substance: LOSARTAN POTASSIUM
     Indication: Product used for unknown indication
     Route: 065
  13. Cinchocaine, Esculin, Framycetin, Hydrocortisone [Concomitant]
     Route: 065
  14. ELIQUIS [Concomitant]
     Active Substance: APIXABAN
     Indication: Product used for unknown indication
     Dosage: 2 EVERY 1 DAYS
     Route: 048
  15. ERGOCALCIFEROL [Concomitant]
     Active Substance: ERGOCALCIFEROL
     Indication: Bone disorder
     Route: 065
  16. ERYTHROMYCIN [Concomitant]
     Active Substance: ERYTHROMYCIN
     Indication: Product used for unknown indication
     Dosage: OPHTHALMIC
  17. FERROUS GLUCEPTATE [Concomitant]
     Active Substance: FERROUS GLUCEPTATE
     Indication: Product used for unknown indication
     Route: 065
  18. FLOMAX [Concomitant]
     Active Substance: TAMSULOSIN HYDROCHLORIDE
     Indication: Product used for unknown indication
     Dosage: SUSTAINED RELEASE CAPSULE, 1 EVERY 1 DAYS
     Route: 048
  19. GLUCOSAMINE [Concomitant]
     Active Substance: GLUCOSAMINE
     Indication: Product used for unknown indication
     Route: 065
  20. FERROUS SULFATE ANHYDROUS [Concomitant]
     Active Substance: FERROUS SULFATE ANHYDROUS
     Indication: Product used for unknown indication
     Dosage: 2 EVERY 1 DAYS
     Route: 065
  21. JANUVIA [Concomitant]
     Active Substance: SITAGLIPTIN PHOSPHATE
     Indication: Product used for unknown indication
     Dosage: 1 EVERY 1 DAYS
     Route: 065
  22. LANSOPRAZOLE [Concomitant]
     Active Substance: LANSOPRAZOLE
     Indication: Product used for unknown indication
     Dosage: DELAYED RELEASE CAPSULE
     Route: 065
  23. LEFLUNOMIDE [Concomitant]
     Active Substance: LEFLUNOMIDE
     Indication: Product used for unknown indication
     Route: 065
  24. POLYETHYLENE GLYCOL 3350 [Concomitant]
     Active Substance: POLYETHYLENE GLYCOL 3350
     Indication: Product used for unknown indication
     Route: 065
  25. METFORMIN [Concomitant]
     Active Substance: METFORMIN HYDROCHLORIDE
     Indication: Product used for unknown indication
     Dosage: 1 EVERY 1 DAYS
     Route: 048
  26. NOVORAPID [Concomitant]
     Active Substance: INSULIN ASPART
     Indication: Product used for unknown indication
     Dosage: SOLUTION SUBCUTANEOUS
     Route: 065
  27. PANTOPRAZOLE SODIUM [Concomitant]
     Active Substance: PANTOPRAZOLE SODIUM
     Indication: Product used for unknown indication
     Dosage: ENTERIC COATED TABLET, 2 EVERY 1 DAYS
     Route: 048
  28. PLAQUENIL [Concomitant]
     Active Substance: HYDROXYCHLOROQUINE SULFATE
     Indication: Product used for unknown indication
     Route: 048
  29. PRAVASTATIN [Concomitant]
     Active Substance: PRAVASTATIN
     Indication: Product used for unknown indication
     Route: 065
  30. ROSUVASTATIN CALCIUM [Concomitant]
     Active Substance: ROSUVASTATIN CALCIUM
     Indication: Product used for unknown indication
     Dosage: 1 EVERY 1 DAYS
     Route: 065
  31. SOLU-MEDROL [Concomitant]
     Active Substance: METHYLPREDNISOLONE SODIUM SUCCINATE
     Indication: Product used for unknown indication
     Route: 042
  32. SYNTHROID [Concomitant]
     Active Substance: LEVOTHYROXINE SODIUM
     Indication: Product used for unknown indication
     Dosage: 1 EVERY 1 DAYS
     Route: 048
  33. VITAMIN B12 [Concomitant]
     Active Substance: CYANOCOBALAMIN
     Indication: Product used for unknown indication
     Route: 065
  34. PREDNISONE [Interacting]
     Active Substance: PREDNISONE
     Indication: Rheumatoid arthritis
     Route: 065
  35. SOLU-MEDROL [Concomitant]
     Active Substance: METHYLPREDNISOLONE SODIUM SUCCINATE
     Indication: Product used for unknown indication

REACTIONS (14)
  - Arthralgia [Recovered/Resolved]
  - Atrial fibrillation [Recovered/Resolved]
  - Chest pain [Recovered/Resolved]
  - C-reactive protein increased [Recovered/Resolved]
  - Disease recurrence [Recovered/Resolved]
  - Drug interaction [Unknown]
  - Drug withdrawal syndrome [Recovered/Resolved]
  - Dyspnoea [Recovered/Resolved]
  - Hypokinesia [Recovered/Resolved]
  - Pain [Recovered/Resolved]
  - Pericarditis [Recovered/Resolved]
  - Pleural effusion [Recovered/Resolved]
  - Rheumatoid arthritis [Recovered/Resolved]
  - Sinus tachycardia [Recovered/Resolved]
